FAERS Safety Report 7911471-8 (Version None)
Quarter: 2011Q4

REPORT INFORMATION
  Report Type: 
  Country: None (occurrence: None)
  Receive Date: 20111109
  Receipt Date: 20111028
  Transmission Date: 20120403
  Serious: Yes (Hospitalization)
  Sender: FDA-Public Use
  Company Number: 2011-4385

PATIENT
  Age: 44 Year
  Sex: Female
  Weight: 57 kg

DRUGS (9)
  1. FENTANYL [Concomitant]
  2. OXYCODONE HCL [Concomitant]
  3. TEMODAR [Concomitant]
  4. SOMATULINE DEPOT [Suspect]
     Indication: NEUROENDOCRINE TUMOUR
     Dosage: 120 MG (120 MG, 1 IN 28 D), SUBCUTANEOUS
     Route: 058
     Dates: start: 20110501
  5. COLACE (DOCUSATE SODIUM) [Concomitant]
  6. OXYCONTIN [Concomitant]
  7. SENAKOT (SENNA ALEXANDRINA) [Concomitant]
  8. CREON [Concomitant]
  9. XELODA [Concomitant]

REACTIONS (3)
  - HAEMOGLOBIN DECREASED [None]
  - HAEMATOCRIT DECREASED [None]
  - URINARY BLADDER HAEMORRHAGE [None]
